FAERS Safety Report 24325169 (Version 2)
Quarter: 2024Q3

REPORT INFORMATION
  Report Type: Spontaneous
  Country: TW (occurrence: TW)
  Receive Date: 20240916
  Receipt Date: 20240920
  Transmission Date: 20241017
  Serious: Yes (Death, Other)
  Sender: MERCK
  Company Number: TW-009507513-2409TWN004371

PATIENT
  Age: 86 Year
  Sex: Female

DRUGS (1)
  1. PEMBROLIZUMAB [Suspect]
     Active Substance: PEMBROLIZUMAB
     Indication: Transitional cell carcinoma
     Dosage: 100 MILLIGRAM, Q3W
     Dates: start: 20220325, end: 20240315

REACTIONS (10)
  - Infection [Fatal]
  - Respiratory failure [Unknown]
  - Tumour compression [Recovered/Resolved]
  - Respiratory muscle weakness [Unknown]
  - Immune-mediated adverse reaction [Unknown]
  - Decreased appetite [Recovered/Resolved]
  - Vomiting [Recovered/Resolved]
  - Abdominal distension [Recovered/Resolved]
  - Product use issue [Unknown]
  - Inappropriate schedule of product administration [Unknown]

NARRATIVE: CASE EVENT DATE: 20220101
